FAERS Safety Report 21773477 (Version 1)
Quarter: 2022Q4

REPORT INFORMATION
  Report Type: Spontaneous
  Country: BR (occurrence: None)
  Receive Date: 20221223
  Receipt Date: 20221223
  Transmission Date: 20230113
  Serious: Yes (Life-Threatening, Other)
  Sender: FDA-Public Use
  Company Number: 2022A381776

PATIENT
  Age: 23 Year
  Sex: Male

DRUGS (2)
  1. SYMBICORT [Suspect]
     Active Substance: BUDESONIDE\FORMOTEROL FUMARATE DIHYDRATE
     Indication: Asthmatic crisis
     Dosage: A JET PER DAY, AS REQUIRED AS REQUIRED
     Route: 055
     Dates: start: 20221101, end: 2022
  2. SYMBICORT [Suspect]
     Active Substance: BUDESONIDE\FORMOTEROL FUMARATE DIHYDRATE
     Indication: Asthmatic crisis
     Dosage: 2 JETS AS REQUIRED
     Route: 055
     Dates: start: 2022

REACTIONS (6)
  - Asthmatic crisis [Recovered/Resolved]
  - Asthma [Unknown]
  - Intentional device misuse [Not Recovered/Not Resolved]
  - Off label use [Not Recovered/Not Resolved]
  - Device breakage [Unknown]
  - Device delivery system issue [Unknown]

NARRATIVE: CASE EVENT DATE: 20221116
